FAERS Safety Report 7090136-1 (Version None)
Quarter: 2010Q4

REPORT INFORMATION
  Report Type: 
  Country: None (occurrence: None)
  Receive Date: 20101105
  Receipt Date: 20101105
  Transmission Date: 20110411
  Serious: Yes (Life-Threatening, Hospitalization)
  Sender: FDA-Public Use
  Company Number: None

PATIENT
  Age: 79 Year
  Sex: Male
  Weight: 112.4921 kg

DRUGS (1)
  1. WARFARIN SODIUM [Suspect]
     Indication: AORTIC VALVE REPLACEMENT
     Dosage: 5 MG WAS AMT PER DAY , BUT 10/20/10 CHANGED TO 5/4DAY + 5 MG DAYS/WK
     Dates: start: 20000901

REACTIONS (3)
  - BLOOD PRESSURE DECREASED [None]
  - CIRCUMSTANCE OR INFORMATION CAPABLE OF LEADING TO MEDICATION ERROR [None]
  - UPPER GASTROINTESTINAL HAEMORRHAGE [None]
